FAERS Safety Report 9348634 (Version 2)
Quarter: 2013Q3

REPORT INFORMATION
  Report Type: Spontaneous
  Country: FR (occurrence: FR)
  Receive Date: 20130614
  Receipt Date: 20130910
  Transmission Date: 20140515
  Serious: Yes (Hospitalization)
  Sender: FDA-Public Use
  Company Number: FR-TEVA-412226ISR

PATIENT
  Age: 88 Year
  Sex: Female

DRUGS (1)
  1. FUROSEMIDE TEVA [Suspect]
     Route: 048

REACTIONS (3)
  - Hypercalcaemia [Recovered/Resolved]
  - Somnolence [Recovered/Resolved]
  - Pruritus [Unknown]
